FAERS Safety Report 13242316 (Version 1)
Quarter: 2017Q1

REPORT INFORMATION
  Report Type: Spontaneous
  Country: US (occurrence: US)
  Receive Date: 20170216
  Receipt Date: 20170216
  Transmission Date: 20170428
  Serious: Yes (Hospitalization, Disabling)
  Sender: FDA-Public Use
  Company Number: None

PATIENT
  Age: 64 Year
  Sex: Female
  Weight: 67.5 kg

DRUGS (5)
  1. OMNEPRIZOL [Concomitant]
  2. SINGULAIR GENERIC [Concomitant]
     Active Substance: MONTELUKAST SODIUM
  3. AZELASTINE HYDROCHLORIDE. [Suspect]
     Active Substance: AZELASTINE HYDROCHLORIDE
     Indication: UPPER-AIRWAY COUGH SYNDROME
     Dosage: ?          OTHER STRENGTH:MCG;QUANTITY:2 SPRAY(S);?
     Route: 055
     Dates: start: 20161108, end: 20170210
  4. FLUTICASONE PROPIONATE NASAL SPRAY [Concomitant]
     Active Substance: FLUTICASONE PROPIONATE
  5. ATORVASTATION [Concomitant]

REACTIONS (7)
  - Vomiting [None]
  - Fall [None]
  - Vision blurred [None]
  - Abnormal behaviour [None]
  - Nausea [None]
  - Dizziness [None]
  - Vertigo [None]

NARRATIVE: CASE EVENT DATE: 20170128
